FAERS Safety Report 7346167-7 (Version None)
Quarter: 2011Q1

REPORT INFORMATION
  Report Type: 
  Country: None (occurrence: None)
  Receive Date: 20110311
  Receipt Date: 20110303
  Transmission Date: 20110831
  Serious: Yes (Hospitalization)
  Sender: FDA-Public Use
  Company Number: BR-ASTELLAS-2011US000921

PATIENT
  Age: 52 Year
  Sex: Male

DRUGS (4)
  1. PROGRAF [Suspect]
     Indication: LIVER TRANSPLANT
     Dosage: 18 MG, UID/QD
     Route: 065
     Dates: start: 20020101, end: 20021106
  2. PREDNISONE [Concomitant]
     Dosage: 60 MG, UID/QD
     Route: 065
     Dates: start: 20020101
  3. PREDNISONE [Concomitant]
     Indication: LIVER TRANSPLANT
     Dosage: 15 MG, UID/QD
     Route: 065
     Dates: start: 20020101, end: 20020101
  4. CYCLOSPORINE [Suspect]
     Indication: LIVER TRANSPLANT
     Dosage: 400 MG, UID/QD
     Route: 065
     Dates: start: 20021106, end: 20021201

REACTIONS (1)
  - MICROANGIOPATHIC HAEMOLYTIC ANAEMIA [None]
